FAERS Safety Report 16442326 (Version 3)
Quarter: 2020Q2

REPORT INFORMATION
  Report Type: Report from Study
  Country: None (occurrence: US)
  Receive Date: 20190617
  Receipt Date: 20200605
  Transmission Date: 20200713
  Serious: No
  Sender: FDA-Public Use
  Company Number: US-US WORLDMEDS, LLC-USW201904-000648

PATIENT
  Sex: Female

DRUGS (20)
  1. REQUIP [Concomitant]
     Active Substance: ROPINIROLE HYDROCHLORIDE
     Indication: RESTLESS LEGS SYNDROME
  2. KLONOPIN [Concomitant]
     Active Substance: CLONAZEPAM
     Indication: TREMOR
  3. VITAMIN B [Concomitant]
     Active Substance: VITAMIN B
  4. ZINC. [Concomitant]
     Active Substance: ZINC
  5. N-ACETYL CYSTEINE [Concomitant]
     Active Substance: ACETYLCYSTEINE
  6. APOKYN [Suspect]
     Active Substance: APOMORPHINE HYDROCHLORIDE
     Indication: PARKINSON^S DISEASE
  7. ZANAFLEX [Concomitant]
     Active Substance: TIZANIDINE HYDROCHLORIDE
     Indication: HYPOTONIA
  8. MAGNESIUM [Concomitant]
     Active Substance: MAGNESIUM
  9. MAGTEIN [Concomitant]
  10. CARBIDOPA/LEVODOPA [Concomitant]
     Active Substance: CARBIDOPA\LEVODOPA
     Indication: FREEZING PHENOMENON
  11. AMANTADINE. [Concomitant]
     Active Substance: AMANTADINE HYDROCHLORIDE
     Indication: DYSKINESIA
  12. VITAMIN B12 [Concomitant]
     Active Substance: CYANOCOBALAMIN
  13. APOKYN [Suspect]
     Active Substance: APOMORPHINE HYDROCHLORIDE
  14. CYMBALTA [Concomitant]
     Active Substance: DULOXETINE HYDROCHLORIDE
     Indication: PAIN
  15. CYMBALTA [Concomitant]
     Active Substance: DULOXETINE HYDROCHLORIDE
     Indication: DEPRESSION
  16. KLONOPIN [Concomitant]
     Active Substance: CLONAZEPAM
     Indication: SLEEP DISORDER
  17. SYNTHROID [Concomitant]
     Active Substance: LEVOTHYROXINE SODIUM
     Indication: HYPOTHYROIDISM
  18. APOKYN [Suspect]
     Active Substance: APOMORPHINE HYDROCHLORIDE
  19. REQUIP [Concomitant]
     Active Substance: ROPINIROLE HYDROCHLORIDE
     Indication: PARKINSON^S DISEASE
  20. VITAMIN E [Concomitant]
     Active Substance: .ALPHA.-TOCOPHEROL

REACTIONS (5)
  - Fall [Unknown]
  - Intervertebral discitis [Unknown]
  - Drug ineffective [Unknown]
  - Dizziness [Unknown]
  - Contusion [Unknown]
